FAERS Safety Report 5416394-4 (Version None)
Quarter: 2007Q3

REPORT INFORMATION
  Report Type: 
  Country: None (occurrence: None)
  Receive Date: 20070816
  Receipt Date: 20070813
  Transmission Date: 20080115
  Serious: Yes (Death, Hospitalization)
  Sender: FDA-Public Use
  Company Number: PHEH2007US10938

PATIENT
  Age: 81 Year
  Sex: Male
  Weight: 102.04 kg

DRUGS (16)
  1. GLEEVEC [Suspect]
     Indication: MYELOPROLIFERATIVE DISORDER
     Dosage: 400 UNK, QD
     Route: 048
     Dates: start: 20070725, end: 20070803
  2. OCUVITE /01053801/ [Concomitant]
     Dosage: 1 DF, QD
     Route: 048
     Dates: start: 20070327
  3. Z-BEC /USA/ [Concomitant]
     Dosage: UNK, QD
     Route: 048
     Dates: start: 20060216
  4. HYDREA [Concomitant]
     Dosage: 500 MG, BID QOD
     Route: 048
     Dates: start: 20061114
  5. HYDREA [Concomitant]
     Dosage: 500 MG, QOD
     Route: 048
     Dates: start: 20061114
  6. CADUET [Concomitant]
     Dosage: 5/10 MG, QD
     Route: 048
  7. RYTHMOL [Concomitant]
     Dosage: 225 MG, BID
     Route: 048
     Dates: start: 20070327
  8. CEFADROXIL [Concomitant]
     Dosage: 500 MG, BID
     Route: 048
     Dates: start: 20070529
  9. CENTRUM SILVER [Concomitant]
     Dosage: 1 DF, QD
     Route: 048
     Dates: start: 20070327
  10. FISH OIL [Concomitant]
     Dosage: 1 DF, QD
     Route: 048
     Dates: start: 20070327
  11. FUROSEMIDE [Concomitant]
     Dosage: 40 MG, QD AM
     Route: 048
     Dates: start: 20060216
  12. FUROSEMIDE [Concomitant]
     Dosage: 20 MG, QD PM
     Route: 048
     Dates: start: 20060216
  13. TOPROL-XL [Concomitant]
     Dosage: 100 MG, QD
     Route: 048
     Dates: start: 20060216
  14. POTASSIUM CHLORIDE [Concomitant]
     Dosage: 10 MEQ, QD
     Route: 048
     Dates: start: 20070327
  15. ATIVAN [Concomitant]
     Dosage: 0.5 MG, Q4H PRN
     Route: 060
     Dates: start: 20070803
  16. ASPIRIN [Concomitant]
     Dosage: 81 MG, UNK
     Route: 048
     Dates: start: 20070717

REACTIONS (1)
  - RESPIRATORY FAILURE [None]
